FAERS Safety Report 5028154-7 (Version None)
Quarter: 2006Q2

REPORT INFORMATION
  Report Type: 
  Country: None (occurrence: None)
  Receive Date: 20060613
  Receipt Date: 20060601
  Transmission Date: 20061013
  Serious: Yes (Other)
  Sender: FDA-Public Use
  Company Number: 2006071947

PATIENT
  Age: 33 Year
  Sex: Female
  Weight: 61.2356 kg

DRUGS (1)
  1. DILANTIN [Suspect]
     Indication: CONVULSION
     Dates: end: 20060101

REACTIONS (8)
  - ACNE [None]
  - GRANULOMA [None]
  - NASAL OEDEMA [None]
  - PURULENCE [None]
  - SKIN CHAPPED [None]
  - SKIN EXFOLIATION [None]
  - SKIN LESION [None]
  - SKIN REACTION [None]
